FAERS Safety Report 9319374 (Version 1)
Quarter: 2013Q2

REPORT INFORMATION
  Report Type: Spontaneous
  Country: US (occurrence: None)
  Receive Date: 20130524
  Receipt Date: 20130524
  Transmission Date: 20140414
  Serious: Yes (Disabling)
  Sender: FDA-Public Use
  Company Number: 1724284

PATIENT
  Age: 15 Year
  Sex: Male

DRUGS (7)
  1. CYTARABINE [Suspect]
     Indication: LEUKAEMIA
     Route: 037
  2. HYDROCORTISONE [Suspect]
     Indication: LEUKAEMIA
     Route: 037
  3. METHYLPREDNISOLONE [Suspect]
     Indication: LEUKAEMIA
  4. VINCRISTINE SULFATE [Suspect]
     Indication: LEUKAEMIA
  5. METHOTREXATE [Suspect]
     Indication: LEUKAEMIA
     Route: 037
  6. CYCLOPHOSPHAMIDE [Suspect]
     Indication: LEUKAEMIA
  7. RITUXIMAB [Suspect]
     Indication: LEUKAEMIA

REACTIONS (1)
  - Guillain-Barre syndrome [None]
